FAERS Safety Report 4490036-7 (Version None)
Quarter: 2004Q4

REPORT INFORMATION
  Report Type: 
  Country: None (occurrence: None)
  Receive Date: 20041027
  Receipt Date: 20041007
  Transmission Date: 20050328
  Serious: No
  Sender: FDA-Public Use
  Company Number: EM2002-0550

PATIENT
  Age: 46 Year
  Sex: Male

DRUGS (13)
  1. ALDESLEUKIN; CHIRON(PROLEUKIN; CHIRON CORPORATION) INJECTION [Suspect]
     Indication: HIV INFECTION
     Dosage: 6 MIU, Q12H, SUBCUTAN.
     Route: 058
     Dates: start: 20020808, end: 20020812
  2. LIPITOR [Concomitant]
  3. NELFINAVIR (NELFINAVIR) [Concomitant]
  4. STAVUDINE (STAVUDINE) [Concomitant]
  5. EPIVIR [Concomitant]
  6. LEUCOVORIN CALCIUM [Concomitant]
  7. IMODIUM [Concomitant]
  8. ANDROGEL [Concomitant]
  9. CLINDAMYCIN (CLINDAMYCIN) [Concomitant]
  10. PYRIMETHAMINE TAB [Concomitant]
  11. PREVACID [Concomitant]
  12. M.V.I. (ASCORBIC ACID, DEXPANTHENOL, ERGOCALCIFEROL, NICOTINAMIDE, PYR [Concomitant]
  13. ASCORBIC ACID (VIT C), INCL COMBINATIONS [Concomitant]

REACTIONS (1)
  - NON-HODGKIN'S LYMPHOMA [None]
